FAERS Safety Report 15888051 (Version 2)
Quarter: 2019Q1

REPORT INFORMATION
  Report Type: Spontaneous
  Country: US (occurrence: US)
  Receive Date: 20190130
  Receipt Date: 20190314
  Transmission Date: 20190417
  Serious: No
  Sender: FDA-Public Use
  Company Number: US-PFIZER INC-2019035537

PATIENT
  Age: 75 Year
  Sex: Female
  Weight: 86.18 kg

DRUGS (1)
  1. LYRICA [Suspect]
     Active Substance: PREGABALIN
     Indication: FIBROMYALGIA
     Dosage: 225 MG, 1X/DAY [ONCE A DAY IN THE EVENING]
     Route: 048
     Dates: end: 201812

REACTIONS (2)
  - Drug effect incomplete [Unknown]
  - Pain [Not Recovered/Not Resolved]

NARRATIVE: CASE EVENT DATE: 201812
